FAERS Safety Report 7003745-2 (Version None)
Quarter: 2010Q3

REPORT INFORMATION
  Report Type: 
  Country: None (occurrence: None)
  Receive Date: 20100917
  Receipt Date: 20100904
  Transmission Date: 20110219
  Serious: Yes (Hospitalization)
  Sender: FDA-Public Use
  Company Number: 10-114

PATIENT
  Age: 64 Year
  Sex: Female
  Weight: 63.5 kg

DRUGS (4)
  1. PIPERACILLIN AND TAZOBACTAM [Suspect]
     Indication: ENTERITIS
     Dosage: 2.25 G, Q6H;
  2. AMLODIPINE [Concomitant]
  3. HYDROCHLOROTHIAZINE [Concomitant]
  4. ASPIRIN [Concomitant]

REACTIONS (2)
  - LEUKOCYTOCLASTIC VASCULITIS [None]
  - PETECHIAE [None]
